FAERS Safety Report 6291061-6 (Version None)
Quarter: 2009Q3

REPORT INFORMATION
  Report Type: 
  Country: None (occurrence: None)
  Receive Date: 20090730
  Receipt Date: 20090718
  Transmission Date: 20100115
  Serious: Yes (Life-Threatening, Hospitalization, Other)
  Sender: FDA-Public Use
  Company Number: US-PFIZER INC-2009200106

PATIENT
  Sex: Male
  Weight: 98.866 kg

DRUGS (15)
  1. BLINDED *NO SUBJECT DRUG [Suspect]
     Indication: CARDIAC FAILURE CONGESTIVE
     Dosage: 50 MG, 1X/DAY
     Route: 048
     Dates: start: 20080708, end: 20090416
  2. BLINDED *PLACEBO [Suspect]
     Indication: CARDIAC FAILURE CONGESTIVE
     Dosage: 50 MG, 1X/DAY
     Route: 048
     Dates: start: 20080708, end: 20090416
  3. BLINDED EPLERENONE [Suspect]
     Indication: CARDIAC FAILURE CONGESTIVE
     Dosage: 50 MG, 1X/DAY
     Route: 048
     Dates: start: 20080708, end: 20090416
  4. BLINDED *NO SUBJECT DRUG [Suspect]
     Dosage: UNK
     Dates: start: 20090511, end: 20090512
  5. BLINDED *PLACEBO [Suspect]
     Dosage: UNK
     Dates: start: 20090511, end: 20090512
  6. BLINDED EPLERENONE [Suspect]
     Dosage: UNK
     Dates: start: 20090511, end: 20090512
  7. COUMADIN [Suspect]
     Dosage: UNK
     Route: 048
     Dates: start: 20080101
  8. FOSINOPRIL SODIUM AND HYDROCHLOROTHIAZIDE [Concomitant]
     Dosage: 10 MG, UNK
     Route: 048
     Dates: start: 20081211, end: 20090512
  9. FOSINOPRIL SODIUM AND HYDROCHLOROTHIAZIDE [Concomitant]
     Dosage: 20 MG, UNK
     Dates: start: 20090513
  10. DILANTIN [Concomitant]
     Dosage: 100 MG, 1X/DAY
     Route: 048
     Dates: start: 19920101
  11. DIGOXIN [Concomitant]
     Dosage: 0.25 MG, 1X/DAY
     Route: 048
     Dates: start: 20080101
  12. PLAVIX [Concomitant]
     Dosage: 75 MG, 1X/DAY
     Route: 048
     Dates: start: 20020101, end: 20090512
  13. TOPROL-XL [Concomitant]
     Dosage: 50 MG, 2X/DAY
     Route: 048
     Dates: start: 19980101
  14. LASIX [Concomitant]
     Dosage: 40 MG, 1X/DAY
     Route: 048
     Dates: start: 20090202
  15. KLOR-CON [Concomitant]
     Dosage: 10 MG, 1X/DAY
     Route: 048
     Dates: start: 20090202

REACTIONS (2)
  - COAGULOPATHY [None]
  - RENAL FAILURE [None]
